FAERS Safety Report 9585059 (Version 1)
Quarter: 2013Q4

REPORT INFORMATION
  Report Type: Spontaneous
  Country: US (occurrence: US)
  Receive Date: 20131002
  Receipt Date: 20131002
  Transmission Date: 20140711
  Serious: No
  Sender: FDA-Public Use
  Company Number: US-AMGEN-USASP2013061494

PATIENT
  Age: 37 Year
  Sex: Female
  Weight: 65.76 kg

DRUGS (7)
  1. ENBREL [Suspect]
     Indication: PRODUCT USED FOR UNKNOWN INDICATION
     Dosage: 50 MG, UNK
     Route: 065
  2. CELEBREX [Concomitant]
     Dosage: 100 MG, UNK
  3. BACLOFEN [Concomitant]
     Dosage: 10 MG, UNK
  4. CALCIUM [Concomitant]
     Dosage: 600 UNK, UNK
  5. B COMPLEX                          /00212701/ [Concomitant]
     Dosage: UNK
  6. FISH OIL [Concomitant]
     Dosage: UNK
  7. FLAXSEED OIL [Concomitant]
     Dosage: UNK

REACTIONS (1)
  - Amenorrhoea [Unknown]
